FAERS Safety Report 19247051 (Version 1)
Quarter: 2021Q2

REPORT INFORMATION
  Report Type: Spontaneous
  Country: TR (occurrence: TR)
  Receive Date: 20210512
  Receipt Date: 20210512
  Transmission Date: 20210717
  Serious: Yes (Life-Threatening, Hospitalization, Other)
  Sender: FDA-Public Use
  Company Number: TR-ACCORD-224447

PATIENT
  Age: 6 Year

DRUGS (6)
  1. BACLOFEN. [Concomitant]
     Active Substance: BACLOFEN
     Indication: EPILEPTIC ENCEPHALOPATHY
  2. SULTIAME [Concomitant]
     Active Substance: SULTHIAME
     Indication: EPILEPTIC ENCEPHALOPATHY
  3. CLOBAZAM. [Suspect]
     Active Substance: CLOBAZAM
     Indication: EPILEPTIC ENCEPHALOPATHY
  4. CLOBAZAM. [Interacting]
     Active Substance: CLOBAZAM
     Indication: EPILEPTIC ENCEPHALOPATHY
  5. VIGABATRIN. [Concomitant]
     Active Substance: VIGABATRIN
     Indication: EPILEPTIC ENCEPHALOPATHY
  6. MEROPENEM. [Interacting]
     Active Substance: MEROPENEM
     Indication: PNEUMONIA

REACTIONS (5)
  - Miosis [Recovered/Resolved]
  - Drug interaction [Unknown]
  - Respiratory arrest [Recovering/Resolving]
  - Somnolence [Recovering/Resolving]
  - Hypercapnia [Recovering/Resolving]
